FAERS Safety Report 8478147-2 (Version None)
Quarter: 2012Q2

REPORT INFORMATION
  Report Type: 
  Country: None (occurrence: None)
  Receive Date: 20120629
  Receipt Date: 20120625
  Transmission Date: 20120825
  Serious: Yes (Other)
  Sender: FDA-Public Use
  Company Number: PHEH2012US012621

PATIENT
  Sex: Female

DRUGS (1)
  1. CARBAMAZEPINE [Suspect]
     Indication: EPILEPSY
     Dosage: 1 PILL OF 100MG, 4 TIMES A DAY
     Route: 048

REACTIONS (4)
  - BRAIN INJURY [None]
  - DRUG INEFFECTIVE [None]
  - CEREBRAL PALSY [None]
  - MENTAL RETARDATION [None]
